FAERS Safety Report 6988498-6 (Version None)
Quarter: 2010Q3

REPORT INFORMATION
  Report Type: 
  Country: None (occurrence: None)
  Receive Date: 20100916
  Receipt Date: 20100903
  Transmission Date: 20110219
  Serious: Yes (Hospitalization)
  Sender: FDA-Public Use
  Company Number: PHHY2009JP36697

PATIENT
  Sex: Female
  Weight: 55 kg

DRUGS (3)
  1. DIOVAN [Suspect]
     Indication: HYPERTENSION
     Dosage: 40MG DAILY
     Route: 048
     Dates: start: 20081023, end: 20090711
  2. AMLODIPINE BESYLATE [Concomitant]
     Indication: HYPERTENSION
     Dosage: 2.5 MG, UNK
     Route: 048
     Dates: start: 20081009, end: 20090711
  3. BUFFERIN [Concomitant]
     Dosage: 81 MG, UNK
     Route: 048
     Dates: start: 20081009

REACTIONS (4)
  - ACUTE MYOCARDIAL INFARCTION [None]
  - BLOOD PRESSURE DIASTOLIC DECREASED [None]
  - CHEST PAIN [None]
  - STENT PLACEMENT [None]
